FAERS Safety Report 17568872 (Version 2)
Quarter: 2020Q1

REPORT INFORMATION
  Report Type: Spontaneous
  Country: GB (occurrence: GB)
  Receive Date: 20200321
  Receipt Date: 20200323
  Transmission Date: 20200409
  Serious: Yes (Hospitalization, Other)
  Sender: FDA-Public Use
  Company Number: GB-TEVA-2020-GB-1205273

PATIENT
  Age: 70 Year
  Sex: Female
  Weight: 64 kg

DRUGS (8)
  1. PACLITAXEL. [Suspect]
     Active Substance: PACLITAXEL
     Indication: OVARIAN CANCER
     Dosage: 144 MG, STRENGTH: 80 MILLIGRAM/SQ. METER, WEEKLY;
     Route: 042
     Dates: start: 20191223
  2. PACLITAXEL. [Suspect]
     Active Substance: PACLITAXEL
     Dosage: STRENGTH: 80 MILLIGRAM/SQ. METER, WEEKLY;
     Route: 042
     Dates: start: 20191203
  3. DOCUSATE SODIUM. [Concomitant]
     Active Substance: DOCUSATE SODIUM
  4. DOMPERIDONE [Concomitant]
     Active Substance: DOMPERIDONE
     Dates: start: 20191202
  5. PACLITAXEL. [Suspect]
     Active Substance: PACLITAXEL
     Dosage: STRENGTH: 80 MILLIGRAM/SQ. METER, WEEKLY;
     Route: 042
     Dates: start: 20191231
  6. HYPROMELLOSE [Concomitant]
     Active Substance: HYPROMELLOSES
  7. PARACETAMOL [Concomitant]
     Active Substance: ACETAMINOPHEN
  8. MORPHINE [Concomitant]
     Active Substance: MORPHINE

REACTIONS (7)
  - Dyspnoea [Not Recovered/Not Resolved]
  - Electrolyte imbalance [Recovering/Resolving]
  - Abdominal pain [Recovering/Resolving]
  - Vomiting [Recovered/Resolved]
  - Malaise [Unknown]
  - Constipation [Recovered/Resolved]
  - Ascites [Not Recovered/Not Resolved]

NARRATIVE: CASE EVENT DATE: 20191205
